FAERS Safety Report 9736294 (Version 1)
Quarter: 2013Q4

REPORT INFORMATION
  Report Type: Spontaneous
  Country: US (occurrence: None)
  Receive Date: 20131204
  Receipt Date: 20131204
  Transmission Date: 20140711
  Serious: Yes (Death)
  Sender: FDA-Public Use
  Company Number: US-ALKEM-000419

PATIENT
  Age: 56 Year
  Sex: Female

DRUGS (9)
  1. GABAPENTIN (GABAPENTIN) [Suspect]
     Route: 048
  2. CITALOPRAM(CITALOPRAM) [Suspect]
     Route: 048
  3. LISINOPRIL(LISINOPRIL) [Suspect]
     Route: 048
  4. CLONAZEPAM (CLONAZEPAM) (CLONAZEPAM) [Suspect]
     Route: 048
  5. CYCLOBENZAPRINE (CYCLOBENZAPRINE) [Suspect]
     Route: 048
  6. ZOLPIDEM (ZOLPIDEM) [Suspect]
     Route: 048
  7. SUMATRIPTAN (SUMATRIPTAN) [Suspect]
     Route: 048
  8. NAPROXEN(NAPROXEN) [Suspect]
     Route: 048
  9. BUTALBITAL ACETAMINOPHEN + CAFFEINE [Suspect]
     Route: 048

REACTIONS (2)
  - Completed suicide [None]
  - Exposure via ingestion [None]
